FAERS Safety Report 7892767-5 (Version None)
Quarter: 2011Q4

REPORT INFORMATION
  Report Type: 
  Country: None (occurrence: None)
  Receive Date: 20111104
  Receipt Date: 20111021
  Transmission Date: 20120403
  Serious: Yes (Death, Hospitalization, Other)
  Sender: FDA-Public Use
  Company Number: CA-ELI_LILLY_AND_COMPANY-CA201110005720

PATIENT
  Sex: Female

DRUGS (10)
  1. RISPERDAL [Concomitant]
  2. LORAZEPAM [Concomitant]
  3. METOPROLOL TARTRATE [Concomitant]
  4. ALTACE [Concomitant]
  5. ZYPREXA [Suspect]
     Indication: DEMENTIA
     Dosage: 2.5 MG, QD
     Dates: start: 20061222, end: 20070127
  6. ARICEPT [Concomitant]
  7. ACTONEL [Concomitant]
  8. ASPIRIN [Concomitant]
  9. TRAZODONE HYDROCHLORIDE [Concomitant]
  10. LASIX [Concomitant]

REACTIONS (10)
  - CARDIAC FAILURE [None]
  - NEUROLEPTIC MALIGNANT SYNDROME [None]
  - AGITATION [None]
  - ASTHENIA [None]
  - ATRIAL FIBRILLATION [None]
  - DELIRIUM [None]
  - CONFUSIONAL STATE [None]
  - OFF LABEL USE [None]
  - PNEUMONIA [None]
  - HYPOTENSION [None]
